FAERS Safety Report 7981170-5 (Version None)
Quarter: 2011Q4

REPORT INFORMATION
  Report Type: 
  Country: None (occurrence: None)
  Receive Date: 20111212
  Receipt Date: 20111205
  Transmission Date: 20120403
  Serious: Yes (Other)
  Sender: FDA-Public Use
  Company Number: 2011SP052526

PATIENT
  Age: 35 Year
  Sex: Female
  Weight: 101 kg

DRUGS (2)
  1. NEXPLANON [Suspect]
     Dosage: 1 DF
     Dates: start: 20110426
  2. TRIPHASIL-21 [Concomitant]

REACTIONS (5)
  - INAPPROPRIATE SCHEDULE OF DRUG ADMINISTRATION [None]
  - ABORTION SPONTANEOUS [None]
  - VOMITING IN PREGNANCY [None]
  - PREGNANCY WITH IMPLANT CONTRACEPTIVE [None]
  - MATERNAL DRUGS AFFECTING FOETUS [None]
